FAERS Safety Report 7713972-4 (Version None)
Quarter: 2011Q3

REPORT INFORMATION
  Report Type: 
  Country: None (occurrence: None)
  Receive Date: 20110826
  Receipt Date: 20110822
  Transmission Date: 20111222
  Serious: Yes (Other)
  Sender: FDA-Public Use
  Company Number: GB-MERCK-1108GBR00107

PATIENT
  Age: 64 Year
  Sex: Female
  Weight: 85 kg

DRUGS (20)
  1. AMINOPHYLLINE [Concomitant]
     Indication: ASTHMA
     Route: 048
     Dates: start: 20110325
  2. FELODIPINE [Concomitant]
     Indication: BLOOD PRESSURE
     Route: 048
     Dates: start: 20110505
  3. LEFLUNOMIDE [Concomitant]
     Indication: RHEUMATOID ARTHRITIS
     Route: 048
     Dates: start: 20091201
  4. VALSARTAN [Concomitant]
     Indication: BLOOD PRESSURE
     Route: 048
  5. SINGULAIR [Suspect]
     Indication: ASTHMA
     Route: 048
     Dates: start: 20110325
  6. DESLORATADINE [Concomitant]
     Indication: SEASONAL ALLERGY
     Route: 048
     Dates: start: 20100521
  7. CROMOLYN SODIUM [Concomitant]
     Indication: SEASONAL ALLERGY
     Route: 065
     Dates: start: 20060101
  8. FOLIC ACID [Concomitant]
     Route: 048
     Dates: start: 20050101
  9. SPIRONOLACTONE [Concomitant]
     Indication: OEDEMA
     Route: 048
     Dates: start: 20110204
  10. FLUTICASONE [Concomitant]
     Indication: SEASONAL ALLERGY
     Route: 055
  11. METHOTREXATE [Concomitant]
     Indication: RHEUMATOID ARTHRITIS
     Route: 048
     Dates: start: 20081201
  12. OMEPRAZOLE [Concomitant]
     Indication: DYSPEPSIA
     Route: 048
     Dates: start: 20101014
  13. ALBUTEROL [Concomitant]
     Indication: ASTHMA
     Route: 065
     Dates: start: 20040101
  14. BUPRENORPHINE [Concomitant]
     Indication: PAIN
     Route: 061
     Dates: start: 20090122
  15. FUROSEMIDE [Concomitant]
     Indication: OEDEMA
     Route: 048
     Dates: start: 20090430
  16. CERTOLIZUMAB PEGOL [Suspect]
     Indication: RHEUMATOID ARTHRITIS
     Route: 058
     Dates: start: 20110221, end: 20110601
  17. AMITRIPTYLINE HYDROCHLORIDE [Concomitant]
     Indication: PAIN
     Route: 065
     Dates: start: 20060101, end: 20110314
  18. WARFARIN [Concomitant]
     Indication: DEEP VEIN THROMBOSIS
     Route: 048
  19. DESLORATADINE [Concomitant]
     Indication: PRURITUS
     Route: 048
     Dates: start: 20100521
  20. FLUTICASONE PROPIONATE AND SALMETEROL XINAFOATE [Concomitant]
     Indication: ASTHMA
     Route: 065
     Dates: start: 20090122

REACTIONS (6)
  - DELUSION [None]
  - AGITATION [None]
  - ANXIETY [None]
  - HALLUCINATION, AUDITORY [None]
  - MENTAL DISORDER [None]
  - PARANOIA [None]
